FAERS Safety Report 5700535-5 (Version None)
Quarter: 2008Q2

REPORT INFORMATION
  Report Type: 
  Country: None (occurrence: None)
  Receive Date: 20080410
  Receipt Date: 20080404
  Transmission Date: 20081010
  Serious: Yes (Other)
  Sender: FDA-Public Use
  Company Number: GB-JNJFOC-20070800101

PATIENT
  Sex: Male
  Weight: 59.6 kg

DRUGS (1)
  1. CONCERTA [Suspect]
     Indication: ATTENTION DEFICIT/HYPERACTIVITY DISORDER
     Dosage: BEEN TAKING FOR 6 MONTHS
     Route: 048

REACTIONS (5)
  - AGITATION [None]
  - BODY TEMPERATURE INCREASED [None]
  - DIZZINESS POSTURAL [None]
  - EMOTIONAL DISORDER [None]
  - FEELING ABNORMAL [None]
